FAERS Safety Report 7903745-1 (Version None)
Quarter: 2011Q4

REPORT INFORMATION
  Report Type: 
  Country: None (occurrence: None)
  Receive Date: 20111109
  Receipt Date: 20111103
  Transmission Date: 20120403
  Serious: Yes (Other)
  Sender: FDA-Public Use
  Company Number: ZA-ROCHE-1009276

PATIENT
  Sex: Male

DRUGS (5)
  1. VINCRISTINE [Concomitant]
     Indication: B-CELL LYMPHOMA
  2. PREDNISONE ^DAK^ [Concomitant]
     Indication: B-CELL LYMPHOMA
  3. MABTHERA [Suspect]
     Indication: B-CELL LYMPHOMA
     Dates: end: 20111003
  4. CYCLOPHOSPHAMIDE [Concomitant]
     Indication: B-CELL LYMPHOMA
     Dates: end: 20111003
  5. ADRIAMYCIN PFS [Concomitant]
     Indication: B-CELL LYMPHOMA

REACTIONS (1)
  - RESPIRATORY DISTRESS [None]
